FAERS Safety Report 7554771-6 (Version None)
Quarter: 2011Q2

REPORT INFORMATION
  Report Type: 
  Country: None (occurrence: None)
  Receive Date: 20110610
  Receipt Date: 20110526
  Transmission Date: 20111010
  Serious: Yes (Death)
  Sender: FDA-Public Use
  Company Number: DSU-2011-01526

PATIENT
  Age: 62 Year
  Sex: Male

DRUGS (2)
  1. ASPIRIN [Concomitant]
  2. NORMETEC (OLMESARTAN MEDOXOMIL, AMLODIPINE BESILATE) (TABLET) (OLMESAR [Suspect]
     Indication: PRODUCT USED FOR UNKNOWN INDICATION
     Dosage: PER ORAL
     Route: 048
     Dates: start: 20101108, end: 20110119

REACTIONS (1)
  - THROMBOSIS [None]
